FAERS Safety Report 5222790-0 (Version None)
Quarter: 2007Q1

REPORT INFORMATION
  Report Type: 
  Country: None (occurrence: None)
  Receive Date: 20070129
  Receipt Date: 20070126
  Transmission Date: 20070707
  Serious: Yes (Disabling)
  Sender: FDA-Public Use
  Company Number: US-GLAXOSMITHKLINE-A0637016A

PATIENT
  Age: 16 Year
  Sex: Female

DRUGS (2)
  1. WELLBUTRIN [Suspect]
     Indication: AUTISM
     Dosage: 150MG PER DAY
     Route: 048
     Dates: start: 20050125
  2. METHYLPHENIDATE HCL [Concomitant]

REACTIONS (3)
  - HYPOAESTHESIA [None]
  - PALPITATIONS [None]
  - PHARMACEUTICAL PRODUCT COMPLAINT [None]
